FAERS Safety Report 25224460 (Version 1)
Quarter: 2025Q2

REPORT INFORMATION
  Report Type: Spontaneous
  Country: CN (occurrence: CN)
  Receive Date: 20250422
  Receipt Date: 20250422
  Transmission Date: 20250717
  Serious: Yes (Other)
  Sender: ROCHE
  Company Number: CN-002147023-NVSC2025CN064250

PATIENT

DRUGS (4)
  1. RANIBIZUMAB [Suspect]
     Active Substance: RANIBIZUMAB
     Indication: Pathologic myopia
     Route: 050
  2. TROPICAMIDE [Concomitant]
     Active Substance: TROPICAMIDE
     Indication: Mydriasis
     Route: 065
  3. BENOXINATE HYDROCHLORIDE [Concomitant]
     Active Substance: BENOXINATE HYDROCHLORIDE
     Indication: Anaesthesia eye
     Route: 065
  4. BENOXINATE HYDROCHLORIDE [Concomitant]
     Active Substance: BENOXINATE HYDROCHLORIDE
     Indication: Eye irrigation

REACTIONS (1)
  - Retinal vascular occlusion [Unknown]
